FAERS Safety Report 4270121-5 (Version None)
Quarter: 2004Q1

REPORT INFORMATION
  Report Type: 
  Country: None (occurrence: None)
  Receive Date: 20040114
  Receipt Date: 20030409
  Transmission Date: 20041129
  Serious: No
  Sender: FDA-Public Use
  Company Number: US-GLAXOSMITHKLINE-A0404373A

PATIENT
  Sex: Female

DRUGS (4)
  1. WELLBUTRIN [Suspect]
     Indication: DEPRESSION
     Dosage: 100MG TWICE PER DAY
     Route: 048
  2. PAXIL [Concomitant]
     Dosage: 300MG TWICE PER DAY
     Route: 065
  3. KLONOPIN [Concomitant]
     Dosage: 3VA PER DAY
     Route: 065
  4. AMBIEN [Concomitant]
     Dosage: 10MG AT NIGHT
     Route: 065

REACTIONS (1)
  - TREMOR [None]
